FAERS Safety Report 18394931 (Version 1)
Quarter: 2020Q4

REPORT INFORMATION
  Report Type: Other
  Country: FR (occurrence: FR)
  Receive Date: 20201016
  Receipt Date: 20201016
  Transmission Date: 20210114
  Serious: Yes (Hospitalization)
  Sender: FDA-Public Use
  Company Number: FR-SERVIER-S20010149

PATIENT

DRUGS (2)
  1. DECTANCYL [Suspect]
     Active Substance: DEXAMETHASONE
     Indication: LEUKAEMIA
     Route: 048
  2. ONCASPAR [Suspect]
     Active Substance: PEGASPARGASE
     Indication: LEUKAEMIA
     Dosage: 1600 IU
     Route: 042

REACTIONS (3)
  - Hepatitis [Recovering/Resolving]
  - Hyperammonaemia [Recovered/Resolved]
  - Hypertriglyceridaemia [Recovered/Resolved]

NARRATIVE: CASE EVENT DATE: 20200902
